FAERS Safety Report 8789402 (Version 1)
Quarter: 2012Q4

REPORT INFORMATION
  Report Type: Spontaneous
  Country: US (occurrence: None)
  Receive Date: 20120910
  Receipt Date: 20120910
  Transmission Date: 20130627
  Serious: No
  Sender: FDA-Public Use
  Company Number: None

PATIENT
  Age: 47 Year
  Sex: Male
  Weight: 77.11 kg

DRUGS (1)
  1. CITALOPRAM [Suspect]
     Indication: ANXIETY DEPRESSION
     Route: 048
     Dates: start: 20120805, end: 20120904

REACTIONS (2)
  - Drug ineffective [None]
  - Product substitution issue [None]
